FAERS Safety Report 17141519 (Version 1)
Quarter: 2019Q4

REPORT INFORMATION
  Report Type: Spontaneous
  Country: JP (occurrence: JP)
  Receive Date: 20191211
  Receipt Date: 20191211
  Transmission Date: 20200122
  Serious: Yes (Hospitalization, Other)
  Sender: FDA-Public Use
  Company Number: JP-VALIDUS PHARMACEUTICALS LLC-JP-2019VAL000826

PATIENT

DRUGS (1)
  1. LASIX [Suspect]
     Active Substance: FUROSEMIDE
     Indication: PRODUCT USED FOR UNKNOWN INDICATION
     Dosage: UNK
     Route: 065

REACTIONS (13)
  - Electrocardiogram QT prolonged [Recovering/Resolving]
  - Alkalosis hypochloraemic [Recovering/Resolving]
  - Ventricular extrasystoles [Recovering/Resolving]
  - Torsade de pointes [Recovering/Resolving]
  - Seizure [Recovering/Resolving]
  - Hypokalaemia [Recovering/Resolving]
  - Vomiting [Recovering/Resolving]
  - Ventricular fibrillation [Recovering/Resolving]
  - Eating disorder [Recovering/Resolving]
  - Respiratory arrest [Recovered/Resolved]
  - Electrolyte imbalance [Recovering/Resolving]
  - Hypocalcaemia [Recovering/Resolving]
  - Hypomagnesaemia [Recovering/Resolving]
